FAERS Safety Report 13492438 (Version 2)
Quarter: 2017Q3

REPORT INFORMATION
  Report Type: Spontaneous
  Country: US (occurrence: US)
  Receive Date: 20170427
  Receipt Date: 20170720
  Transmission Date: 20171127
  Serious: Yes (Disabling)
  Sender: FDA-Public Use
  Company Number: US-JNJFOC-20170422379

PATIENT
  Sex: Male

DRUGS (1)
  1. RISPERDAL [Suspect]
     Active Substance: RISPERIDONE
     Indication: PRODUCT USED FOR UNKNOWN INDICATION
     Route: 065

REACTIONS (8)
  - Homeless [Unknown]
  - Mental disorder [Unknown]
  - Thinking abnormal [Unknown]
  - Loss of personal independence in daily activities [Unknown]
  - Sluggishness [Unknown]
  - Vision blurred [Unknown]
  - Constipation [Unknown]
  - Gynaecomastia [Unknown]
